FAERS Safety Report 15043428 (Version 4)
Quarter: 2022Q2

REPORT INFORMATION
  Report Type: Spontaneous
  Country: US (occurrence: US)
  Receive Date: 20180621
  Receipt Date: 20220405
  Transmission Date: 20220721
  Serious: Yes (Hospitalization, Other)
  Sender: FDA-Public Use
  Company Number: US-SA-2018SA161370

PATIENT
  Age: 78 Year
  Sex: Female

DRUGS (22)
  1. KEVZARA [Suspect]
     Active Substance: SARILUMAB
     Indication: Rheumatoid arthritis
     Dosage: 200 MG, QOW
     Route: 058
     Dates: start: 20180406, end: 201805
  2. KEVZARA [Suspect]
     Active Substance: SARILUMAB
     Indication: Rheumatoid arthritis
     Dosage: 200 MG QOW
     Route: 058
     Dates: start: 20190101
  3. IRON [Concomitant]
     Active Substance: IRON
  4. BUSPIRONE HCL [Concomitant]
     Active Substance: BUSPIRONE HYDROCHLORIDE
  5. VITAMIN D3 [Concomitant]
     Active Substance: CHOLECALCIFEROL
  6. VITAMINS [Concomitant]
     Active Substance: VITAMINS
  7. CYANOCOBALAMIN [Concomitant]
     Active Substance: CYANOCOBALAMIN
  8. VITAMIN D2 [Concomitant]
     Active Substance: ERGOCALCIFEROL
  9. METHOTREXATE [Concomitant]
     Active Substance: METHOTREXATE
  10. LYRICA [Concomitant]
     Active Substance: PREGABALIN
  11. HYDROCODONE [Concomitant]
     Active Substance: HYDROCODONE
  12. LUTEIN VISION PLUS [Concomitant]
  13. AVAPRO [Concomitant]
     Active Substance: IRBESARTAN
  14. OMEPRAZOLE [Concomitant]
     Active Substance: OMEPRAZOLE
  15. RECLAST [Concomitant]
     Active Substance: ZOLEDRONIC ACID
  16. VITAMINS NOS [Concomitant]
     Active Substance: VITAMINS
  17. LEVOTHYROXINE [Concomitant]
     Active Substance: LEVOTHYROXINE
  18. VITAMIN B12 [Concomitant]
     Active Substance: CYANOCOBALAMIN
     Dosage: VITAMIN B 12, 2 2500 TABLET
  19. VITAMIN B12 [Concomitant]
     Active Substance: CYANOCOBALAMIN
     Dosage: VITAMIN B12 500MCG TABLET
  20. ASPIRIN [Concomitant]
     Active Substance: ASPIRIN
  21. INDAPAMIDE [Concomitant]
     Active Substance: INDAPAMIDE
  22. OSCAL [Concomitant]
     Active Substance: CALCIUM CARBONATE

REACTIONS (6)
  - Lower limb fracture [Unknown]
  - Fall [Unknown]
  - Ankle fracture [Unknown]
  - Hospitalisation [Unknown]
  - Illness [Unknown]
  - Product dose omission issue [Unknown]

NARRATIVE: CASE EVENT DATE: 20200201
